FAERS Safety Report 13835428 (Version 1)
Quarter: 2017Q3

REPORT INFORMATION
  Report Type: Spontaneous
  Country: US (occurrence: US)
  Receive Date: 20170804
  Receipt Date: 20170804
  Transmission Date: 20171127
  Serious: Yes (Hospitalization)
  Sender: FDA-Public Use
  Company Number: None

PATIENT
  Age: 35 Year
  Sex: Female

DRUGS (12)
  1. FARYDAK [Suspect]
     Active Substance: PANOBINOSTAT
     Indication: ACUTE MYELOID LEUKAEMIA
     Dates: start: 20170113, end: 20170803
  2. MAGNESIUM [Concomitant]
     Active Substance: MAGNESIUM
  3. PANTOPRAZOLE [Concomitant]
     Active Substance: PANTOPRAZOLE
  4. LEVOTHYROXINE. [Concomitant]
     Active Substance: LEVOTHYROXINE
  5. VITAMIN D3 [Concomitant]
     Active Substance: CHOLECALCIFEROL
  6. LORATADINE. [Concomitant]
     Active Substance: LORATADINE
  7. ONDANSETRON [Concomitant]
     Active Substance: ONDANSETRON
  8. VORICONAZOLE. [Concomitant]
     Active Substance: VORICONAZOLE
  9. TACROLIMUS. [Concomitant]
     Active Substance: TACROLIMUS
  10. MELATONIN [Concomitant]
     Active Substance: MELATONIN
  11. ACYCLOVIR. [Concomitant]
     Active Substance: ACYCLOVIR
  12. SERTRALINE [Concomitant]
     Active Substance: SERTRALINE HYDROCHLORIDE

REACTIONS (2)
  - Unevaluable event [None]
  - Hospitalisation [None]

NARRATIVE: CASE EVENT DATE: 20170803
